FAERS Safety Report 9138050 (Version 2)
Quarter: 2013Q1

REPORT INFORMATION
  Report Type: Report from Study
  Country: CH (occurrence: CH)
  Receive Date: 20130304
  Receipt Date: 20130327
  Transmission Date: 20140127
  Serious: Yes (Life-Threatening, Hospitalization, Other)
  Sender: FDA-Public Use
  Company Number: CH-PFIZER INC-2013071663

PATIENT
  Age: 37 Year
  Sex: Male

DRUGS (8)
  1. BOSUTINIB [Suspect]
     Indication: ACUTE LYMPHOCYTIC LEUKAEMIA
     Dosage: 500 MG, 1X/DAY
     Route: 048
     Dates: start: 20121221, end: 20130107
  2. CYTARABINE [Suspect]
     Dosage: UNK
     Dates: start: 20121214
  3. FLUDARABINE [Suspect]
     Dosage: UNK
     Dates: start: 20121214
  4. G-CSF [Suspect]
     Dosage: UNK
     Dates: start: 20121214
  5. CEFEPIME [Concomitant]
     Indication: BACTERAEMIA
     Dosage: 2 G, 3X/DAY
     Route: 042
     Dates: start: 20121225, end: 20121230
  6. CIPRALEX [Concomitant]
     Indication: DEPRESSION
     Dosage: 20 MG, 1X/DAY
     Route: 048
  7. TAZOBAC [Concomitant]
     Dosage: UNK
     Dates: start: 20130102, end: 20130107
  8. CEFTRIAXONE [Concomitant]
     Dosage: UNK
     Dates: start: 20130107, end: 20130115

REACTIONS (4)
  - Lung infiltration [Recovered/Resolved]
  - Agranulocytosis [Recovered/Resolved]
  - Diarrhoea [Unknown]
  - Rash [Recovered/Resolved]
